FAERS Safety Report 6729732-7 (Version None)
Quarter: 2010Q2

REPORT INFORMATION
  Report Type: 
  Country: None (occurrence: None)
  Receive Date: 20100518
  Receipt Date: 20100219
  Transmission Date: 20101027
  Serious: Yes (Other)
  Sender: FDA-Public Use
  Company Number: DE-NAPPMUNDI-DEU-2010-0005976

PATIENT
  Age: 45 Year

DRUGS (3)
  1. PALLADON RETARD 8 MG [Suspect]
     Indication: PAIN
     Dosage: 8 MG, BID
     Route: 048
  2. PALLADON RETARD 8 MG [Suspect]
     Dosage: UNK
     Dates: start: 20050101
  3. ANALGESICS [Concomitant]

REACTIONS (3)
  - DRY MOUTH [None]
  - GINGIVAL RECESSION [None]
  - LOOSE TOOTH [None]
